FAERS Safety Report 5120127-9 (Version None)
Quarter: 2006Q4

REPORT INFORMATION
  Report Type: 
  Country: None (occurrence: None)
  Receive Date: 20061002
  Receipt Date: 20061002
  Transmission Date: 20070319
  Serious: Yes (Other)
  Sender: FDA-Public Use
  Company Number: None

PATIENT
  Age: 77 Year
  Sex: Male
  Weight: 83.4619 kg

DRUGS (2)
  1. REMERON [Suspect]
     Indication: MAJOR DEPRESSION
     Dosage: 45 MG HS PO
     Route: 048
     Dates: start: 20040501, end: 20040801
  2. REMERON [Suspect]
     Indication: MAJOR DEPRESSION
     Dosage: 45 MG HS PO
     Route: 048
     Dates: start: 20050301

REACTIONS (3)
  - NIGHTMARE [None]
  - NOCTURIA [None]
  - PRIAPISM [None]
